FAERS Safety Report 8262058 (Version 1)
Quarter: 2020Q3

REPORT INFORMATION
  Report Type: Report from Study
  Country: AU (occurrence: AU)
  Receive Date: 20111123
  Receipt Date: 20111123
  Transmission Date: 20201104
  Serious: Yes (Hospitalization)
  Sender: FDA-Public Use
  Company Number: AU-JNJFOC-20110606205

PATIENT
  Age: 61 Year
  Sex: Female
  Weight: 103 kg

DRUGS (20)
  1. MOBIC [Concomitant]
     Active Substance: MELOXICAM
     Indication: ARTHRALGIA
     Route: 048
     Dates: start: 20100414
  2. ACETAMINOPHEN. [Concomitant]
     Active Substance: ACETAMINOPHEN
     Indication: DISCOMFORT
     Route: 048
     Dates: start: 20090108
  3. DOCUSATE SODIUM. [Concomitant]
     Active Substance: DOCUSATE SODIUM
     Indication: CONSTIPATION
     Route: 048
     Dates: start: 20090419
  4. PROBIOTIC [Concomitant]
     Indication: PROPHYLAXIS
     Route: 048
     Dates: start: 20091117
  5. GOLIMUMAB [Suspect]
     Active Substance: GOLIMUMAB
     Route: 058
     Dates: start: 20110504
  6. POLARAMINE [Concomitant]
     Active Substance: DEXCHLORPHENIRAMINE MALEATE
     Indication: SEASONAL ALLERGY
     Route: 048
     Dates: start: 20090721
  7. ENDEP [Concomitant]
     Active Substance: AMITRIPTYLINE HYDROCHLORIDE
     Indication: RESTLESS LEGS SYNDROME
     Route: 048
     Dates: start: 2003
  8. MAXOLON [Concomitant]
     Active Substance: METOCLOPRAMIDE HYDROCHLORIDE
     Indication: RESTLESS LEGS SYNDROME
     Route: 048
     Dates: start: 20090119
  9. ALDACTONE [Concomitant]
     Active Substance: SPIRONOLACTONE
     Route: 048
     Dates: start: 20080316
  10. LEVOTHYROXINE SODIUM. [Concomitant]
     Active Substance: LEVOTHYROXINE SODIUM
     Indication: HYPOTHYROIDISM
     Route: 048
     Dates: start: 20090319
  11. GOLIMUMAB [Suspect]
     Active Substance: GOLIMUMAB
     Indication: COLITIS ULCERATIVE
     Route: 058
     Dates: start: 20090218
  12. GOLIMUMAB [Suspect]
     Active Substance: GOLIMUMAB
     Route: 058
  13. NASONEX [Concomitant]
     Active Substance: MOMETASONE FUROATE
     Indication: SEASONAL ALLERGY
     Route: 048
     Dates: start: 20090728
  14. ANTACID [Concomitant]
     Indication: ANTACID THERAPY
     Route: 048
     Dates: start: 20090918
  15. MERCAPTOPURINE. [Concomitant]
     Active Substance: MERCAPTOPURINE
     Indication: COLITIS ULCERATIVE
     Route: 048
     Dates: start: 20080316
  16. NEXIUM [Concomitant]
     Active Substance: ESOMEPRAZOLE MAGNESIUM
     Indication: GASTROOESOPHAGEAL REFLUX DISEASE
     Route: 048
     Dates: start: 20110224
  17. PRAMIPEXOLE DIHYDROCHLORIDE. [Concomitant]
     Active Substance: PRAMIPEXOLE DIHYDROCHLORIDE
     Indication: RESTLESS LEGS SYNDROME
     Route: 048
     Dates: start: 20100219
  18. MESALAMINE. [Concomitant]
     Active Substance: MESALAMINE
     Route: 048
     Dates: start: 20081110
  19. GOLIMUMAB [Suspect]
     Active Substance: GOLIMUMAB
     Route: 058
     Dates: start: 20090107
  20. DOMPERIDONE [Concomitant]
     Active Substance: DOMPERIDONE
     Indication: COLITIS ULCERATIVE
     Route: 048
     Dates: start: 20090923

REACTIONS (4)
  - Gastroenteritis [Recovered/Resolved]
  - Lymphocyte count decreased [None]
  - Blood urea nitrogen/creatinine ratio increased [None]
  - Gamma-glutamyltransferase increased [None]

NARRATIVE: CASE EVENT DATE: 20110608
